FAERS Safety Report 15332457 (Version 2)
Quarter: 2018Q3

REPORT INFORMATION
  Report Type: Other
  Country: PT (occurrence: PT)
  Receive Date: 20180830
  Receipt Date: 20180910
  Transmission Date: 20181010
  Serious: Yes (Hospitalization, Other)
  Sender: FDA-Public Use
  Company Number: PT-MERCK KGAA-2054454

PATIENT
  Age: 26 Year
  Sex: Male

DRUGS (15)
  1. ANASTROZOLE. [Suspect]
     Active Substance: ANASTROZOLE
  2. CABERGOLINE. [Suspect]
     Active Substance: CABERGOLINE
  3. TESTOSTERONE CYPIONATE. [Suspect]
     Active Substance: TESTOSTERONE CYPIONATE
  4. LIOTHYRONINE [Suspect]
     Active Substance: LIOTHYRONINE
  5. SUSTANON [Suspect]
     Active Substance: TESTOSTERONE
  6. FLUOXYMESTERONE [Suspect]
     Active Substance: FLUOXYMESTERONE
  7. TRENBOLONE [Suspect]
     Active Substance: TRENBOLONE
  8. DROSTANOLONE PROPIONATE [Suspect]
     Active Substance: DROMOSTANOLONE PROPIONATE
  9. NOVOTHYROX [Suspect]
     Active Substance: LEVOTHYROXINE SODIUM
     Indication: PERFORMANCE ENHANCING PRODUCT USE
  10. TESTOSTERONE ENANTHATE. [Suspect]
     Active Substance: TESTOSTERONE ENANTHATE
  11. STANOZOLOL [Suspect]
     Active Substance: STANOZOLOL
  12. MESTEROLONE [Suspect]
     Active Substance: MESTEROLONE
     Route: 065
  13. ALTIZIDE [Suspect]
     Active Substance: ALTHIAZIDE
  14. SPIRONOLACTONE. [Suspect]
     Active Substance: SPIRONOLACTONE
  15. CLENBUTEROL [Suspect]
     Active Substance: CLENBUTEROL

REACTIONS (8)
  - Glucose tolerance decreased [Unknown]
  - Drug abuse [Unknown]
  - Secondary hypogonadism [Recovered/Resolved]
  - Performance enhancing product use [Unknown]
  - Haematocrit increased [Unknown]
  - Blood glucose increased [Unknown]
  - Diabetes mellitus [Recovered/Resolved]
  - Autoimmune thyroiditis [Recovered/Resolved]
